FAERS Safety Report 7679058-2 (Version None)
Quarter: 2011Q3

REPORT INFORMATION
  Report Type: 
  Country: None (occurrence: None)
  Receive Date: 20110812
  Receipt Date: 20110803
  Transmission Date: 20111222
  Serious: Yes (Other)
  Sender: FDA-Public Use
  Company Number: DE-AMGEN-DEUSP2011039189

PATIENT
  Sex: Female

DRUGS (3)
  1. PROLIA [Suspect]
     Indication: PRODUCT USED FOR UNKNOWN INDICATION
     Dosage: UNK
  2. OPIATES [Concomitant]
  3. PAIN RELIEVER [Concomitant]

REACTIONS (3)
  - INTERVERTEBRAL DISC DISORDER [None]
  - SURGERY [None]
  - HYPERHIDROSIS [None]
